FAERS Safety Report 5892846-8 (Version None)
Quarter: 2008Q3

REPORT INFORMATION
  Report Type: 
  Country: None (occurrence: None)
  Receive Date: 20080923
  Receipt Date: 20080529
  Transmission Date: 20090109
  Serious: No
  Sender: FDA-Public Use
  Company Number: US-BAYER-200824775NA

PATIENT
  Age: 60 Year
  Sex: Female
  Weight: 50 kg

DRUGS (2)
  1. CLIMARA [Suspect]
     Indication: MENOPAUSAL SYMPTOMS
     Route: 062
     Dates: start: 20080524
  2. CLIMARA [Suspect]
     Route: 062
     Dates: start: 20080524

REACTIONS (5)
  - ARTHRITIS [None]
  - HOT FLUSH [None]
  - NIGHT SWEATS [None]
  - NO ADVERSE EVENT [None]
  - OEDEMA PERIPHERAL [None]
